FAERS Safety Report 9337230 (Version 1)
Quarter: 2013Q2

REPORT INFORMATION
  Report Type: Spontaneous
  Country: US (occurrence: US)
  Receive Date: 20130607
  Receipt Date: 20130607
  Transmission Date: 20140414
  Serious: Yes (Hospitalization, Other)
  Sender: FDA-Public Use
  Company Number: US-ELI_LILLY_AND_COMPANY-US201305009130

PATIENT
  Age: 41 Year
  Sex: Female

DRUGS (6)
  1. CYMBALTA [Suspect]
     Indication: ANXIETY
     Dosage: 60 MG, QD
  2. CYMBALTA [Suspect]
     Dosage: 60 MG, BID
  3. CYMBALTA [Suspect]
     Dosage: 30 MG, QD
  4. NUVIGIL [Concomitant]
     Indication: NARCOLEPSY
  5. PREVACID [Concomitant]
  6. METFORMIN [Concomitant]
     Indication: POLYCYSTIC OVARIES
     Dosage: 500 MG, UNKNOWN

REACTIONS (13)
  - Serotonin syndrome [Unknown]
  - Bronchitis [Unknown]
  - Asthma [Unknown]
  - Insomnia [Unknown]
  - Drug withdrawal syndrome [Unknown]
  - Agitation [Unknown]
  - Hallucination [Unknown]
  - Aphasia [Unknown]
  - Musculoskeletal stiffness [Unknown]
  - Abnormal behaviour [Unknown]
  - Depression [Unknown]
  - Crying [Unknown]
  - Memory impairment [Unknown]
